FAERS Safety Report 12061567 (Version 1)
Quarter: 2016Q1

REPORT INFORMATION
  Report Type: Spontaneous
  Country: US (occurrence: US)
  Receive Date: 20160210
  Receipt Date: 20160210
  Transmission Date: 20160526
  Serious: No
  Sender: FDA-Public Use
  Company Number: US-ALLERGAN-1503824US

PATIENT
  Sex: Female

DRUGS (1)
  1. BOTOX [Suspect]
     Active Substance: ONABOTULINUMTOXINA
     Indication: FACIAL ASYMMETRY
     Dosage: UNK UNK, SINGLE
     Dates: start: 20150225, end: 20150225

REACTIONS (2)
  - Facial paresis [Recovered/Resolved]
  - Off label use [Unknown]
